FAERS Safety Report 15481045 (Version 2)
Quarter: 2018Q4

REPORT INFORMATION
  Report Type: Spontaneous
  Country: JP (occurrence: JP)
  Receive Date: 20181010
  Receipt Date: 20181018
  Transmission Date: 20190205
  Serious: Yes (Hospitalization, Other)
  Sender: FDA-Public Use
  Company Number: JP-SAKK-2018SA273984AA

PATIENT
  Age: 81 Year
  Sex: Male

DRUGS (2)
  1. DISOPYRAMIDE [Suspect]
     Active Substance: DISOPYRAMIDE
     Indication: ARRHYTHMIA
     Dosage: UNK
     Route: 065
  2. GLIMEPIRIDE. [Suspect]
     Active Substance: GLIMEPIRIDE
     Indication: DIABETES MELLITUS
     Route: 048

REACTIONS (4)
  - Hemiplegia [Recovered/Resolved]
  - Dyslalia [Recovered/Resolved]
  - Feeling abnormal [Recovered/Resolved]
  - Hypoglycaemia [Recovered/Resolved]
